FAERS Safety Report 22249405 (Version 1)
Quarter: 2023Q2

REPORT INFORMATION
  Report Type: Report from Study
  Country: CO (occurrence: CO)
  Receive Date: 20230425
  Receipt Date: 20230425
  Transmission Date: 20230722
  Serious: Yes (Other)
  Sender: FDA-Public Use
  Company Number: CO-JNJFOC-20230442928

PATIENT
  Age: 68 Year
  Sex: Female
  Weight: 38 kg

DRUGS (1)
  1. DARATUMUMAB [Suspect]
     Active Substance: DARATUMUMAB
     Indication: Plasma cell myeloma
     Dosage: LATEST APPLICATION: 17-MAR-2023
     Route: 041
     Dates: start: 20230317

REACTIONS (1)
  - Choking [Unknown]

NARRATIVE: CASE EVENT DATE: 20230317
